FAERS Safety Report 6150056-3 (Version None)
Quarter: 2009Q2

REPORT INFORMATION
  Report Type: 
  Country: None (occurrence: None)
  Receive Date: 20090407
  Receipt Date: 20090407
  Transmission Date: 20091009
  Serious: Yes (Other)
  Sender: FDA-Public Use
  Company Number: None

PATIENT
  Age: 4 Year
  Sex: Female
  Weight: 12.7007 kg

DRUGS (4)
  1. MIRALAX [Suspect]
     Indication: FAECALOMA
     Dosage: 1/2 CAPSULE DAILY PO
     Route: 048
     Dates: start: 20080410, end: 20080610
  2. MIRALAX [Suspect]
     Indication: FAECALOMA
     Dosage: 1/2 CAPSULE DAILY PO
     Route: 048
     Dates: start: 20090105, end: 20090406
  3. MULTI-VITAMIN [Concomitant]
  4. ASCORBIC ACID [Concomitant]

REACTIONS (4)
  - DIARRHOEA [None]
  - FAECAL INCONTINENCE [None]
  - PSYCHOMOTOR HYPERACTIVITY [None]
  - TIC [None]
